FAERS Safety Report 24892973 (Version 1)
Quarter: 2025Q1

REPORT INFORMATION
  Report Type: Spontaneous
  Country: US (occurrence: US)
  Receive Date: 20250128
  Receipt Date: 20250128
  Transmission Date: 20250408
  Serious: Yes (Hospitalization, Other)
  Sender: DR REDDYS
  Company Number: US-DRL-USA-USA/2025/01/001272

PATIENT
  Age: 66 Year
  Sex: Male

DRUGS (5)
  1. PANTOPRAZOLE [Suspect]
     Active Substance: PANTOPRAZOLE
     Indication: Necrotising oesophagitis
  2. FAMOTIDINE [Suspect]
     Active Substance: FAMOTIDINE
     Indication: Necrotising oesophagitis
  3. TACROLIMUS [Suspect]
     Active Substance: TACROLIMUS
     Indication: Immunosuppressant drug therapy
  4. NIRMATRELVIR\RITONAVIR [Suspect]
     Active Substance: NIRMATRELVIR\RITONAVIR
     Indication: COVID-19
  5. REMDESIVIR [Suspect]
     Active Substance: REMDESIVIR
     Indication: COVID-19

REACTIONS (5)
  - Necrotising oesophagitis [Unknown]
  - Disease progression [Unknown]
  - Drug ineffective [Unknown]
  - COVID-19 [Unknown]
  - Product use in unapproved indication [Unknown]
